FAERS Safety Report 10089506 (Version 1)
Quarter: 2014Q2

REPORT INFORMATION
  Report Type: Spontaneous
  Country: SE (occurrence: SE)
  Receive Date: 20140421
  Receipt Date: 20140421
  Transmission Date: 20141212
  Serious: Yes (Other)
  Sender: FDA-Public Use
  Company Number: SE-ELI_LILLY_AND_COMPANY-SE201404003508

PATIENT
  Age: 49 Year
  Sex: Female

DRUGS (1)
  1. ZYPADHERA [Suspect]
     Indication: PRODUCT USED FOR UNKNOWN INDICATION
     Dosage: 405 MG, 2/M
     Route: 030
     Dates: start: 201308

REACTIONS (2)
  - Injection site abscess [Unknown]
  - Prescribed overdose [Unknown]
